FAERS Safety Report 11258985 (Version 1)
Quarter: 2015Q3

REPORT INFORMATION
  Report Type: Spontaneous
  Country: US (occurrence: US)
  Receive Date: 20150710
  Receipt Date: 20150710
  Transmission Date: 20151125
  Serious: No
  Sender: FDA-Public Use
  Company Number: US-ELI_LILLY_AND_COMPANY-US201311004879

PATIENT
  Sex: Male

DRUGS (2)
  1. GLUCAGON. [Suspect]
     Active Substance: GLUCAGON
     Indication: TYPE 2 DIABETES MELLITUS
     Dosage: UNK UNK, UNKNOWN
     Route: 065
  2. GLUCAGON. [Suspect]
     Active Substance: GLUCAGON
     Indication: BLOOD GLUCOSE DECREASED

REACTIONS (1)
  - Wrong drug administered [Unknown]

NARRATIVE: CASE EVENT DATE: 20131113
